FAERS Safety Report 8548649-9 (Version None)
Quarter: 2012Q2

REPORT INFORMATION
  Report Type: 
  Country: None (occurrence: None)
  Receive Date: 20120416
  Receipt Date: 20110325
  Transmission Date: 20120825
  Serious: Yes (Other)
  Sender: FDA-Public Use
  Company Number: PHHY2011US25691

PATIENT
  Age: 78 Year
  Sex: Male

DRUGS (13)
  1. VITAMIN D [Concomitant]
  2. ULORIC [Concomitant]
  3. LIPITOR [Concomitant]
  4. WARFIMD [Concomitant]
  5. AMITIZA [Concomitant]
  6. LEVIVIR [Concomitant]
  7. DIOVAN [Suspect]
     Dosage: 80 MG, QD
  8. FUROSEMIDE [Concomitant]
  9. LEVOTHYROXINE SODIUM [Concomitant]
  10. COLCHICINE [Concomitant]
  11. NOVOLOG [Concomitant]
  12. ASPIRIN [Concomitant]
  13. CYMLIN [Concomitant]

REACTIONS (1)
  - BLOOD PRESSURE DECREASED [None]
